FAERS Safety Report 23102538 (Version 2)
Quarter: 2023Q4

REPORT INFORMATION
  Report Type: Report from Study
  Country: US (occurrence: US)
  Receive Date: 20231025
  Receipt Date: 20231102
  Transmission Date: 20240109
  Serious: No
  Sender: FDA-Public Use
  Company Number: US-002147023-NVSC2023US228363

PATIENT
  Sex: Female

DRUGS (2)
  1. KISQALI FEMARA CO-PACK [Suspect]
     Active Substance: LETROZOLE\RIBOCICLIB
     Indication: Breast cancer
     Dosage: 400 MG, QD
     Route: 048
  2. KISQALI FEMARA CO-PACK [Suspect]
     Active Substance: LETROZOLE\RIBOCICLIB
     Dosage: 200 MG, QD
     Route: 048

REACTIONS (7)
  - Platelet count decreased [Unknown]
  - Drug level decreased [Unknown]
  - Product dose omission issue [Unknown]
  - Heart rate irregular [Unknown]
  - Palpitations [Unknown]
  - Expired product administered [Unknown]
  - Madarosis [Unknown]
